FAERS Safety Report 4717793-6 (Version None)
Quarter: 2005Q3

REPORT INFORMATION
  Report Type: 
  Country: None (occurrence: None)
  Receive Date: 20050715
  Receipt Date: 20041021
  Transmission Date: 20060218
  Serious: Yes (Other)
  Sender: FDA-Public Use
  Company Number: 2004-00680

PATIENT
  Age: 75 Year
  Sex: Male

DRUGS (2)
  1. INTEGRILIN [Suspect]
     Indication: CHEST PAIN
     Dates: start: 20041018
  2. LOVENOX [Concomitant]

REACTIONS (1)
  - THROMBOCYTOPENIA [None]
